FAERS Safety Report 14152175 (Version 1)
Quarter: 2017Q4

REPORT INFORMATION
  Report Type: Spontaneous
  Country: IT (occurrence: IT)
  Receive Date: 20171102
  Receipt Date: 20171102
  Transmission Date: 20180321
  Serious: Yes (Hospitalization)
  Sender: FDA-Public Use
  Company Number: IT-009507513-1710ITA015911

PATIENT
  Age: 11 Month
  Sex: Female
  Weight: 4.9 kg

DRUGS (3)
  1. ESMERON [Suspect]
     Active Substance: ROCURONIUM BROMIDE
     Indication: INDUCTION OF ANAESTHESIA
     Dosage: 20 MG, ONCE
     Dates: start: 20171006, end: 20171006
  2. PROPOFOL. [Concomitant]
     Active Substance: PROPOFOL
     Indication: INDUCTION OF ANAESTHESIA
     Dosage: 10 MG, ONCE
     Route: 042
     Dates: start: 20171006, end: 20171006
  3. SEVOFLURANE. [Concomitant]
     Active Substance: SEVOFLURANE
     Indication: INDUCTION OF ANAESTHESIA
     Dosage: 20 MG, ONCE
     Route: 055
     Dates: start: 20171006, end: 20171006

REACTIONS (3)
  - Drug administration error [Unknown]
  - Accidental overdose [Unknown]
  - Muscular weakness [Recovered/Resolved]

NARRATIVE: CASE EVENT DATE: 20171006
